FAERS Safety Report 9703639 (Version 2)
Quarter: 2013Q4

REPORT INFORMATION
  Report Type: Spontaneous
  Country: US (occurrence: US)
  Receive Date: 20131122
  Receipt Date: 20131122
  Transmission Date: 20140711
  Serious: No
  Sender: FDA-Public Use
  Company Number: US-PFIZER INC-2013299417

PATIENT
  Age: 65 Year
  Sex: Male

DRUGS (13)
  1. SUTENT [Suspect]
     Indication: RENAL CANCER
     Dosage: 12.5 MG, UNK
     Dates: start: 20130304
  2. ASPIRIN [Concomitant]
     Dosage: UNK
  3. CEPHALEXIN [Concomitant]
     Dosage: UNK, UNK
  4. CYCLOBENZAPRINE HYDROCHLORIDE [Concomitant]
     Dosage: UNK
  5. CYMBALTA [Concomitant]
     Dosage: UNK
  6. FUROSEMIDE [Concomitant]
     Dosage: UNK
  7. GABAPENTIN [Concomitant]
     Dosage: UNK
  8. LISINOPRIL [Concomitant]
     Dosage: UNK
  9. MAGNESIUM [Concomitant]
     Dosage: UNK
  10. POTASSIUM CHLORIDE CRYS ER [Concomitant]
     Dosage: UNK
  11. ZYVOX [Concomitant]
     Dosage: UNK
  12. LEVAQUIN [Concomitant]
     Dosage: UNK
  13. LYRICA [Concomitant]

REACTIONS (1)
  - Localised infection [Unknown]
